FAERS Safety Report 18525544 (Version 1)
Quarter: 2020Q4

REPORT INFORMATION
  Report Type: Spontaneous
  Country: US (occurrence: US)
  Receive Date: 20201120
  Receipt Date: 20201120
  Transmission Date: 20210114
  Serious: No
  Sender: FDA-Public Use
  Company Number: US-ALVOGEN-2020-ALVOGEN-115236

PATIENT
  Age: 74 Year
  Sex: Female

DRUGS (15)
  1. ZOSYN [Suspect]
     Active Substance: PIPERACILLIN SODIUM\TAZOBACTAM SODIUM
     Indication: PYREXIA
     Dosage: 3375 G
     Route: 042
     Dates: start: 20200522
  2. ACICLOVIR [Suspect]
     Active Substance: ACYCLOVIR
     Indication: ANTIVIRAL PROPHYLAXIS
     Dates: start: 20200522
  3. ASCORBIC ACID/BIOTIN/CALCIUM/CALCIUM PANTOTHENATE/CHLORINE/CHROMIUM/COLECALCIFEROL/COPPER/CYANOCOBAL [Concomitant]
     Indication: PRODUCT USED FOR UNKNOWN INDICATION
  4. GILTERITINIB [Concomitant]
     Active Substance: GILTERITINIB
     Indication: PRODUCT USED FOR UNKNOWN INDICATION
  5. ONDANSETRON [Concomitant]
     Active Substance: ONDANSETRON
     Indication: PRODUCT USED FOR UNKNOWN INDICATION
  6. PANTOPRAZOLE [Concomitant]
     Active Substance: PANTOPRAZOLE
     Indication: PRODUCT USED FOR UNKNOWN INDICATION
  7. CRESEMBA [Concomitant]
     Active Substance: ISAVUCONAZONIUM SULFATE
     Indication: PRODUCT USED FOR UNKNOWN INDICATION
  8. CLINDAMYCIN. [Suspect]
     Active Substance: CLINDAMYCIN
     Indication: CELLULITIS
     Dosage: 600 MG, 3X/DAY
     Route: 042
     Dates: start: 20200525, end: 20200528
  9. VANCOMYCIN [Suspect]
     Active Substance: VANCOMYCIN
     Indication: CELLULITIS
     Dosage: 1500 MG, DAILY
     Dates: start: 20200522
  10. AZACITIDINE. [Concomitant]
     Active Substance: AZACITIDINE
     Indication: PRODUCT USED FOR UNKNOWN INDICATION
  11. CIPROFLOXACIN/DEXAMETHASONE [Concomitant]
     Active Substance: CIPROFLOXACIN\DEXAMETHASONE
     Indication: PRODUCT USED FOR UNKNOWN INDICATION
  12. LORAZEPAM. [Concomitant]
     Active Substance: LORAZEPAM
     Indication: PRODUCT USED FOR UNKNOWN INDICATION
  13. COLECALCIFEROL [Concomitant]
     Active Substance: CHOLECALCIFEROL
     Indication: PRODUCT USED FOR UNKNOWN INDICATION
  14. CIPRO [Concomitant]
     Active Substance: CIPROFLOXACIN HYDROCHLORIDE
     Indication: PRODUCT USED FOR UNKNOWN INDICATION
  15. PROCHLORPERAZINE. [Concomitant]
     Active Substance: PROCHLORPERAZINE
     Indication: PRODUCT USED FOR UNKNOWN INDICATION

REACTIONS (2)
  - Lymphadenopathy [Unknown]
  - Drug ineffective [Unknown]
